FAERS Safety Report 6194776-3 (Version None)
Quarter: 2009Q2

REPORT INFORMATION
  Report Type: 
  Country: None (occurrence: None)
  Receive Date: 20090515
  Receipt Date: 20090515
  Transmission Date: 20091009
  Serious: Yes (Hospitalization)
  Sender: FDA-Public Use
  Company Number: None

PATIENT
  Age: 48 Year
  Sex: Female
  Weight: 86.1834 kg

DRUGS (1)
  1. PREDNISONE TAB [Suspect]
     Indication: RHEUMATOID ARTHRITIS
     Dates: start: 20060901, end: 20090519

REACTIONS (14)
  - ARTHRALGIA [None]
  - BACK PAIN [None]
  - BONE DISORDER [None]
  - CUSHINGOID [None]
  - DYSSTASIA [None]
  - GAIT DISTURBANCE [None]
  - HYPERHIDROSIS [None]
  - INCREASED TENDENCY TO BRUISE [None]
  - LOSS OF EMPLOYMENT [None]
  - MOVEMENT DISORDER [None]
  - SKIN HAEMORRHAGE [None]
  - SKIN LACERATION [None]
  - SPINAL DISORDER [None]
  - WEIGHT INCREASED [None]
